FAERS Safety Report 21756151 (Version 1)
Quarter: 2022Q4

REPORT INFORMATION
  Report Type: Spontaneous
  Country: US (occurrence: None)
  Receive Date: 20221219
  Receipt Date: 20221219
  Transmission Date: 20230112
  Serious: Yes (Hospitalization)
  Sender: FDA-Public Use
  Company Number: None

PATIENT
  Age: 52 Year
  Sex: Male

DRUGS (1)
  1. IBRANCE [Suspect]
     Active Substance: PALBOCICLIB
     Dosage: 100MG ONCE DAILY ORAL
     Route: 048

REACTIONS (2)
  - Coronary artery surgery [None]
  - Therapy interrupted [None]

NARRATIVE: CASE EVENT DATE: 20221213
